FAERS Safety Report 6973423-4 (Version None)
Quarter: 2010Q3

REPORT INFORMATION
  Report Type: 
  Country: None (occurrence: None)
  Receive Date: 20100907
  Receipt Date: 20100826
  Transmission Date: 20110219
  Serious: Yes (Other)
  Sender: FDA-Public Use
  Company Number: AUR-APL-2010-01218

PATIENT
  Age: 41 Year
  Sex: Male

DRUGS (12)
  1. GABAPENTIN [Suspect]
     Indication: NEUROPATHY PERIPHERAL
     Dosage: 600MG, TWICE DAILY
  2. ASPIRIN [Concomitant]
  3. CALCITRIOL [Concomitant]
  4. CALCIUM WITH VITAMIN D [Concomitant]
  5. DAPSOME [Concomitant]
  6. FERROUS SULFATE [Concomitant]
  7. METOPROLOL TARTRATE [Concomitant]
  8. MULTIVITAMIN WITH MINERALS [Concomitant]
  9. PANTOPRAZOLE [Concomitant]
  10. TACROLIMUS [Concomitant]
  11. ZOLPIDEM [Concomitant]
  12. SILDENAFIL [Concomitant]

REACTIONS (8)
  - ANXIETY [None]
  - FEELING ABNORMAL [None]
  - HEADACHE [None]
  - HYPERHIDROSIS [None]
  - INSOMNIA [None]
  - PALPITATIONS [None]
  - THERAPY CESSATION [None]
  - WITHDRAWAL SYNDROME [None]
